FAERS Safety Report 12513201 (Version 1)
Quarter: 2016Q2

REPORT INFORMATION
  Report Type: Spontaneous
  Country: US (occurrence: None)
  Receive Date: 20160629
  Receipt Date: 20160629
  Transmission Date: 20160815
  Serious: Yes (Hospitalization)
  Sender: FDA-Public Use
  Company Number: None

PATIENT
  Age: 82 Year
  Sex: Male
  Weight: 79.7 kg

DRUGS (2)
  1. SERTRALINE [Suspect]
     Active Substance: SERTRALINE HYDROCHLORIDE
     Indication: DEPRESSION
     Route: 048
     Dates: start: 20160603, end: 20160614
  2. QUETIAPINE. [Suspect]
     Active Substance: QUETIAPINE
     Indication: DEMENTIA
     Route: 048
     Dates: start: 20160603, end: 20160614

REACTIONS (8)
  - Hyperhidrosis [None]
  - Body temperature increased [None]
  - Blood pressure systolic increased [None]
  - Neuroleptic malignant syndrome [None]
  - Acute kidney injury [None]
  - Tachycardia [None]
  - Muscle rigidity [None]
  - Sedation [None]

NARRATIVE: CASE EVENT DATE: 20160614
